FAERS Safety Report 5884367-3 (Version None)
Quarter: 2008Q3

REPORT INFORMATION
  Report Type: 
  Country: None (occurrence: None)
  Receive Date: 20080915
  Receipt Date: 20080903
  Transmission Date: 20090109
  Serious: Yes (Other)
  Sender: FDA-Public Use
  Company Number: US-PFIZER INC-2008060069

PATIENT
  Sex: Female
  Weight: 84.09 kg

DRUGS (12)
  1. CHANTIX [Suspect]
     Indication: SMOKING CESSATION THERAPY
     Route: 048
     Dates: start: 20070801
  2. PREVACID [Concomitant]
  3. PLAVIX [Concomitant]
  4. ALL OTHER THERAPEUTIC PRODUCTS [Concomitant]
  5. CYMBALTA [Concomitant]
  6. BACLOFEN [Concomitant]
  7. SYNTHROID [Concomitant]
  8. DIAZEPAM [Concomitant]
  9. TEMAZEPAM [Concomitant]
  10. AMITIZA [Concomitant]
  11. IRON [Concomitant]
  12. CALCIUM [Concomitant]

REACTIONS (2)
  - FEELING ABNORMAL [None]
  - HALLUCINATION, AUDITORY [None]
